FAERS Safety Report 8378930-8 (Version None)
Quarter: 2012Q2

REPORT INFORMATION
  Report Type: 
  Country: None (occurrence: None)
  Receive Date: 20120523
  Receipt Date: 20120518
  Transmission Date: 20120825
  Serious: No
  Sender: FDA-Public Use
  Company Number: US-PFIZER INC-2012097550

PATIENT
  Sex: Female

DRUGS (4)
  1. INDOMETHACIN [Concomitant]
     Indication: PAIN
     Dosage: UNCERTAIN
  2. OXYCODONE [Concomitant]
     Indication: PAIN
     Dosage: UNCERTAIN
  3. HYDROCHLOROTHIAZIDE [Concomitant]
     Indication: HYPERTENSION
     Dosage: DAILY
  4. XALKORI [Suspect]
     Indication: LUNG NEOPLASM MALIGNANT
     Dosage: 250 MG, 2X/DAY, INDEFINITE
     Route: 048
     Dates: start: 20120410

REACTIONS (4)
  - VISUAL IMPAIRMENT [None]
  - NAUSEA [None]
  - VOMITING [None]
  - DIARRHOEA [None]
